FAERS Safety Report 9629790 (Version 2)
Quarter: 2013Q4

REPORT INFORMATION
  Report Type: Spontaneous
  Country: VE (occurrence: VE)
  Receive Date: 20131017
  Receipt Date: 20131025
  Transmission Date: 20140711
  Serious: Yes (Death)
  Sender: FDA-Public Use
  Company Number: VE-PFIZER INC-2013296347

PATIENT
  Age: 86 Year
  Sex: Male

DRUGS (3)
  1. CADUET [Suspect]
     Dosage: [AMLODIPINE BESILATE 5MG]/[ATORVASTATIN CALCIUM 40MG], UNK
     Route: 048
     Dates: start: 2010
  2. TRANGOREX [Concomitant]
     Dosage: 200 MG, UNK
     Route: 048
  3. PLAVIX [Concomitant]
     Dosage: 75 MG, UNK
     Route: 048

REACTIONS (1)
  - Cardiac arrest [Fatal]
